FAERS Safety Report 25624306 (Version 1)
Quarter: 2025Q3

REPORT INFORMATION
  Report Type: Report from Study
  Country: US (occurrence: US)
  Receive Date: 20250730
  Receipt Date: 20250730
  Transmission Date: 20251020
  Serious: Yes (Other)
  Sender: MALLINCKRODT
  Company Number: US-MALLINCKRODT-MNK202504353

PATIENT
  Sex: Female

DRUGS (1)
  1. CORTICOTROPIN [Suspect]
     Active Substance: CORTICOTROPIN
     Indication: Uveitis

REACTIONS (5)
  - Oxygen saturation decreased [Recovering/Resolving]
  - Fall [Unknown]
  - Dizziness [Unknown]
  - Coccydynia [Recovering/Resolving]
  - Pyrexia [Unknown]
